FAERS Safety Report 6226159-1 (Version None)
Quarter: 2009Q2

REPORT INFORMATION
  Report Type: 
  Country: None (occurrence: None)
  Receive Date: 20090612
  Receipt Date: 20090508
  Transmission Date: 20091009
  Serious: No
  Sender: FDA-Public Use
  Company Number: US-ABBOTT-09P-163-0572495-00

PATIENT
  Sex: Female
  Weight: 61.744 kg

DRUGS (11)
  1. HUMIRA [Suspect]
     Indication: ANKYLOSING SPONDYLITIS
     Route: 058
     Dates: start: 20090422
  2. METHOTREXATE [Concomitant]
     Indication: ANKYLOSING SPONDYLITIS
  3. VOLTAREN [Concomitant]
     Indication: ANKYLOSING SPONDYLITIS
  4. MISOPROSTOL [Concomitant]
     Indication: PROPHYLAXIS AGAINST GASTROINTESTINAL ULCER
  5. ALLEGRA D 24 HOUR [Concomitant]
     Indication: HYPERSENSITIVITY
  6. NEXIUM [Concomitant]
     Indication: GASTROOESOPHAGEAL REFLUX DISEASE
  7. FLONASE [Concomitant]
     Indication: HYPERSENSITIVITY
  8. VAGIFEM [Concomitant]
     Indication: HORMONE REPLACEMENT THERAPY
  9. METROGEL [Concomitant]
     Indication: ROSACEA
  10. MOVE FREE ADVANCED [Concomitant]
     Indication: JOINT STIFFNESS
  11. SOY TABLET [Concomitant]
     Indication: HOT FLUSH

REACTIONS (1)
  - INJECTION SITE SWELLING [None]
